FAERS Safety Report 9383082 (Version 1)
Quarter: 2013Q3

REPORT INFORMATION
  Report Type: Spontaneous
  Country: US (occurrence: US)
  Receive Date: 20130704
  Receipt Date: 20130704
  Transmission Date: 20140515
  Serious: No
  Sender: FDA-Public Use
  Company Number: US-009507513-1306USA011649

PATIENT
  Age: 66 Year
  Sex: Male
  Weight: 89.71 kg

DRUGS (7)
  1. VICTRELIS [Suspect]
     Indication: HEPATITIS C
     Dosage: 800 MG, TID
     Route: 048
     Dates: start: 20130528
  2. RIBASPHERE [Suspect]
     Indication: HEPATITIS C
  3. PEGASYS [Suspect]
     Indication: HEPATITIS C
  4. VICODIN [Concomitant]
  5. VERAPAMIL [Concomitant]
  6. ASPIRIN [Concomitant]
  7. HYDROCHLOROTHIAZIDE [Concomitant]

REACTIONS (7)
  - Fatigue [Unknown]
  - Influenza like illness [Unknown]
  - Pruritus [Unknown]
  - Pain [Unknown]
  - Dysgeusia [Unknown]
  - Diarrhoea [Unknown]
  - Change of bowel habit [Unknown]
